FAERS Safety Report 9775719 (Version 1)
Quarter: 2013Q4

REPORT INFORMATION
  Report Type: Spontaneous
  Country: GB (occurrence: None)
  Receive Date: 20131218
  Receipt Date: 20131218
  Transmission Date: 20140711
  Serious: Yes (Hospitalization)
  Sender: FDA-Public Use
  Company Number: NL01PV13.34883

PATIENT
  Age: 68 Year
  Sex: Male
  Weight: 90 kg

DRUGS (3)
  1. TAMSULOSIN [Suspect]
     Indication: BIOPSY PROSTATE
     Route: 048
  2. TAMSULOSIN [Suspect]
     Route: 048
     Dates: start: 20131022
  3. METFORMIN (METFORMIN) [Concomitant]

REACTIONS (5)
  - Depressed level of consciousness [None]
  - Defaecation urgency [None]
  - Hypotension [None]
  - Nausea [None]
  - Vomiting [None]
